FAERS Safety Report 8328704-9 (Version None)
Quarter: 2012Q2

REPORT INFORMATION
  Report Type: 
  Country: None (occurrence: None)
  Receive Date: 20120502
  Receipt Date: 20120502
  Transmission Date: 20120825
  Serious: Yes (Other)
  Sender: FDA-Public Use
  Company Number: US-PFIZER INC-2012102031

PATIENT
  Sex: Female
  Weight: 109 kg

DRUGS (18)
  1. LYRICA [Suspect]
     Dosage: 150 MG, 2X/DAY
     Route: 048
  2. SULFASALAZINE [Suspect]
     Indication: FIBROMYALGIA
  3. CITALOPRAM [Suspect]
     Indication: DEPRESSION
     Dosage: UNK
  4. CYMBALTA [Suspect]
     Indication: DEPRESSION
     Dosage: UNK
  5. LYRICA [Suspect]
     Indication: FIBROMYALGIA
     Dosage: 75 MG, 2X/DAY
     Route: 048
  6. HYDROCHLOROTHIAZIDE [Suspect]
     Indication: LEFT VENTRICULAR DYSFUNCTION
  7. SALSALATE [Suspect]
     Indication: ARTHRITIS
     Dosage: 1500 MG, 2X/DAY
  8. CALCITRIOL [Suspect]
     Dosage: UNK
  9. HYDROCHLOROTHIAZIDE [Suspect]
     Indication: OEDEMA PERIPHERAL
     Dosage: 25 MG, DAILY
  10. VITAMIN C [Suspect]
     Dosage: UNK
  11. KLOR-CON [Suspect]
     Dosage: 20 MEQ, DAILY
  12. LEVOXYL [Suspect]
     Indication: THYROIDECTOMY
     Dosage: 100 UG, DAILY
  13. VITAMIN D [Suspect]
     Dosage: UNK
  14. LIPITOR [Suspect]
     Indication: BLOOD CHOLESTEROL INCREASED
     Dosage: 40 MG, DAILY
     Route: 048
  15. LOMOTIL [Suspect]
     Indication: COLITIS
     Dosage: ^0.25^ MG, 3X/DAY
  16. METFORMIN HCL [Suspect]
     Indication: DIABETES MELLITUS
     Dosage: 50 MG, DAILY
  17. SULFASALAZINE [Suspect]
     Indication: ARTHRITIS
     Dosage: 1000 MG, 2X/DAY
  18. KLOR-CON [Suspect]
     Indication: BLOOD POTASSIUM DECREASED
     Dosage: 10 MEQ, DAILY

REACTIONS (4)
  - DIZZINESS [None]
  - THYROID CANCER [None]
  - DIABETES MELLITUS [None]
  - BLOOD POTASSIUM DECREASED [None]
